FAERS Safety Report 14178160 (Version 1)
Quarter: 2017Q4

REPORT INFORMATION
  Report Type: Spontaneous
  Country: FR (occurrence: FR)
  Receive Date: 20171110
  Receipt Date: 20171110
  Transmission Date: 20180321
  Serious: Yes (Hospitalization)
  Sender: FDA-Public Use
  Company Number: FR-MERCK KGAA-2033851

PATIENT
  Age: 82 Year
  Sex: Female

DRUGS (10)
  1. NOVOTHYROX [Suspect]
     Active Substance: LEVOTHYROXINE SODIUM
     Indication: THYROIDECTOMY
     Route: 048
     Dates: start: 20170831, end: 20170918
  2. DOLIPRANE [Concomitant]
     Active Substance: ACETAMINOPHEN
  3. IXPRIM [Concomitant]
     Active Substance: ACETAMINOPHEN\TRAMADOL HYDROCHLORIDE
  4. GEL TEARS [Concomitant]
     Route: 047
  5. MOBIC [Concomitant]
     Active Substance: MELOXICAM
  6. NOVOTHYROX [Suspect]
     Active Substance: LEVOTHYROXINE SODIUM
     Route: 048
     Dates: start: 20170919
  7. ATENOLOL TEVA [Concomitant]
     Active Substance: ATENOLOL
  8. VESICARE [Concomitant]
     Active Substance: SOLIFENACIN SUCCINATE
  9. COVERSYL [Concomitant]
     Active Substance: PERINDOPRIL
  10. OMEPRAZOLE. [Concomitant]
     Active Substance: OMEPRAZOLE

REACTIONS (11)
  - Rib fracture [None]
  - Fatigue [None]
  - Balance disorder [None]
  - Head discomfort [None]
  - Nausea [None]
  - Vomiting [None]
  - Vertigo [None]
  - Blood pressure increased [None]
  - Fall [None]
  - Diarrhoea [None]
  - Blood thyroid stimulating hormone normal [None]

NARRATIVE: CASE EVENT DATE: 20170831
